FAERS Safety Report 11741998 (Version 1)
Quarter: 2015Q4

REPORT INFORMATION
  Report Type: Other
  Country: GB (occurrence: GB)
  Receive Date: 20151116
  Receipt Date: 20151116
  Transmission Date: 20160304
  Serious: Yes (Other)
  Sender: FDA-Public Use
  Company Number: GB-PERRIGO-15GB011733

PATIENT

DRUGS (1)
  1. IBUPROFEN 16028/0028 200 MG [Suspect]
     Active Substance: IBUPROFEN
     Indication: JOINT INJURY
     Dosage: EVERY 4-6 HOURS
     Route: 048
     Dates: start: 20151025, end: 20151026

REACTIONS (3)
  - Pruritus [Recovering/Resolving]
  - Ocular hyperaemia [Recovering/Resolving]
  - Headache [Recovering/Resolving]

NARRATIVE: CASE EVENT DATE: 20151025
